FAERS Safety Report 10010802 (Version 1)
Quarter: 2014Q1

REPORT INFORMATION
  Report Type: Report from Study
  Country: CO (occurrence: CO)
  Receive Date: 20140314
  Receipt Date: 20140314
  Transmission Date: 20141002
  Serious: Yes (Other)
  Sender: FDA-Public Use
  Company Number: CO-BAYER-2014-034456

PATIENT
  Sex: Female

DRUGS (1)
  1. BETAFERON [Suspect]
     Indication: MULTIPLE SCLEROSIS
     Dosage: 8 MIU, QD
     Route: 058
     Dates: start: 2011

REACTIONS (4)
  - Syncope [Not Recovered/Not Resolved]
  - Cardiac disorder [Unknown]
  - Hyperhidrosis [Not Recovered/Not Resolved]
  - Inappropriate schedule of drug administration [None]
